FAERS Safety Report 25456571 (Version 2)
Quarter: 2025Q3

REPORT INFORMATION
  Report Type: Spontaneous
  Country: EU (occurrence: EU)
  Receive Date: 20250619
  Receipt Date: 20250718
  Transmission Date: 20251020
  Serious: Yes (Hospitalization, Other)
  Sender: SANOFI AVENTIS
  Company Number: EU-SA-2025SA173745

PATIENT
  Age: 69 Year
  Sex: Male

DRUGS (8)
  1. DUPIXENT [Suspect]
     Active Substance: DUPILUMAB
     Dates: start: 20250411, end: 20250411
  2. DUPIXENT [Suspect]
     Active Substance: DUPILUMAB
     Dosage: 300MG QOW
     Dates: start: 202504, end: 20250604
  3. DUPIXENT [Suspect]
     Active Substance: DUPILUMAB
     Dates: start: 20250711
  4. Decloban [Concomitant]
  5. Ibis [Concomitant]
  6. PROTOPIC [Concomitant]
     Active Substance: TACROLIMUS
  7. CALCIFEDIOL [Concomitant]
     Active Substance: CALCIFEDIOL
  8. AMLODIPINE BESYLATE\OLMESARTAN MEDOXOMIL [Concomitant]
     Active Substance: AMLODIPINE BESYLATE\OLMESARTAN MEDOXOMIL

REACTIONS (2)
  - Thrombocytopenia [Recovered/Resolved]
  - COVID-19 [Unknown]

NARRATIVE: CASE EVENT DATE: 20250101
